FAERS Safety Report 26123923 (Version 1)
Quarter: 2025Q4

REPORT INFORMATION
  Report Type: Report from Study
  Country: PK (occurrence: PK)
  Receive Date: 20251205
  Receipt Date: 20251205
  Transmission Date: 20260117
  Serious: Yes (Death)
  Sender: ROCHE
  Company Number: PK-ROCHE-10000369780

PATIENT
  Age: 56 Year
  Sex: Female

DRUGS (2)
  1. RITUXIMAB [Suspect]
     Active Substance: RITUXIMAB
     Indication: Diffuse large B-cell lymphoma
     Dosage: FORMULATION: SOLUTION
     Route: 042
     Dates: start: 20250626
  2. RITUXIMAB [Suspect]
     Active Substance: RITUXIMAB
     Dosage: FORMULATION: SOLUTION
     Route: 042

REACTIONS (2)
  - Weight decreased [Unknown]
  - Diffuse large B-cell lymphoma [Fatal]

NARRATIVE: CASE EVENT DATE: 20251015
